FAERS Safety Report 25215539 (Version 1)
Quarter: 2025Q2

REPORT INFORMATION
  Report Type: Spontaneous
  Country: US (occurrence: US)
  Receive Date: 20250418
  Receipt Date: 20250418
  Transmission Date: 20250717
  Serious: No
  Sender: Phathom Pharmaceuticals
  Company Number: US-PHATHOM PHARMACEUTICALS INC.-2025PHT00305

PATIENT
  Sex: Female

DRUGS (1)
  1. VOQUEZNA [Suspect]
     Active Substance: VONOPRAZAN FUMARATE
     Indication: Erosive oesophagitis
     Route: 048

REACTIONS (1)
  - Erosive oesophagitis [Not Recovered/Not Resolved]

NARRATIVE: CASE EVENT DATE: 20250206
